FAERS Safety Report 14028221 (Version 1)
Quarter: 2017Q3

REPORT INFORMATION
  Report Type: Report from Study
  Country: None (occurrence: RO)
  Receive Date: 20170930
  Receipt Date: 20170930
  Transmission Date: 20171128
  Serious: Yes (Hospitalization)
  Sender: FDA-Public Use
  Company Number: RO-ABBVIE-17K-135-2073653-00

PATIENT
  Age: 60 Year
  Sex: Male

DRUGS (2)
  1. DUODOPA [Suspect]
     Active Substance: CARBIDOPA\LEVODOPA
     Indication: PARKINSON^S DISEASE
     Dosage: 16/24??DM-15.2 ML, RC-4.4 ML/H, ED-1.5 ML;
     Route: 050
     Dates: start: 20140703
  2. OMNIC [Concomitant]
     Active Substance: TAMSULOSIN HYDROCHLORIDE
     Indication: PROSTATIC ADENOMA
     Route: 048

REACTIONS (9)
  - Urinary tract infection fungal [Recovering/Resolving]
  - Stoma site erythema [Recovering/Resolving]
  - Escherichia urinary tract infection [Recovering/Resolving]
  - Urinary retention [Recovering/Resolving]
  - Candida infection [Recovering/Resolving]
  - Stoma site discharge [Recovering/Resolving]
  - Abdominal pain lower [Recovering/Resolving]
  - General physical condition abnormal [Recovering/Resolving]
  - Hallucination [Recovered/Resolved]

NARRATIVE: CASE EVENT DATE: 20170811
